FAERS Safety Report 5099397-1 (Version None)
Quarter: 2006Q3

REPORT INFORMATION
  Report Type: 
  Country: None (occurrence: None)
  Receive Date: 20060906
  Receipt Date: 20060825
  Transmission Date: 20061208
  Serious: Yes (Other)
  Sender: FDA-Public Use
  Company Number: B0436795A

PATIENT
  Age: 19 Year
  Sex: Male

DRUGS (3)
  1. ESKALITH [Suspect]
     Indication: BIPOLAR I DISORDER
     Dosage: SEE DOSAGE TEXT / ORAL
     Route: 048
  2. ARIPIPRAZOLE (FORMULATION UNKNOWN) (ARIPIPRAZOLE) [Suspect]
     Indication: BIPOLAR I DISORDER
     Dosage: SEE DOSAGE TEXT / ORAL
     Route: 048
  3. VALPROIC ACID [Concomitant]

REACTIONS (9)
  - AGGRESSION [None]
  - AGITATION [None]
  - ASTHENIA [None]
  - DELUSION OF GRANDEUR [None]
  - MOOD SWINGS [None]
  - NEUROLEPTIC MALIGNANT SYNDROME [None]
  - PARANOIA [None]
  - TREMOR [None]
  - WHITE BLOOD CELL COUNT INCREASED [None]
